FAERS Safety Report 9988237 (Version 4)
Quarter: 2014Q2

REPORT INFORMATION
  Report Type: Spontaneous
  Country: JP (occurrence: JP)
  Receive Date: 20140309
  Receipt Date: 20140509
  Transmission Date: 20141212
  Serious: Yes (Hospitalization)
  Sender: FDA-Public Use
  Company Number: JP-BRISTOL-MYERS SQUIBB COMPANY-20213211

PATIENT
  Age: 83 Year
  Sex: Female
  Weight: 52 kg

DRUGS (3)
  1. ELIQUIS [Suspect]
     Indication: CEREBROVASCULAR ACCIDENT PROPHYLAXIS
     Dosage: INTERRUPTED: DEC13
     Route: 048
     Dates: start: 20131024, end: 201312
  2. ANCARON [Concomitant]
     Dosage: TAB,50MG: 07NOV13
     Route: 048
     Dates: start: 2013, end: 20131106
  3. TAKEPRON [Concomitant]
     Dosage: OD TAB
     Route: 048

REACTIONS (2)
  - Gastrointestinal haemorrhage [Recovered/Resolved]
  - Anaemia [Unknown]
